FAERS Safety Report 18384229 (Version 2)
Quarter: 2021Q1

REPORT INFORMATION
  Report Type: Spontaneous
  Country: US (occurrence: US)
  Receive Date: 20201014
  Receipt Date: 20210112
  Transmission Date: 20210419
  Serious: No
  Sender: FDA-Public Use
  Company Number: US-INTRA-CELLULAR THERAPIES, INC.-2020ICT00141

PATIENT
  Age: 57 Year
  Sex: Male

DRUGS (8)
  1. ZOLOFT [Concomitant]
     Active Substance: SERTRALINE HYDROCHLORIDE
     Dosage: 100 MG, 1X/DAY
  2. ELAVIL [Concomitant]
     Active Substance: AMITRIPTYLINE HYDROCHLORIDE
     Dosage: 75 MG, 1X/DAY AT BEDTIME
  3. LISINOPRIL. [Concomitant]
     Active Substance: LISINOPRIL
     Dosage: 20 MG, 1X/DAY
  4. CAPLYTA [Suspect]
     Active Substance: LUMATEPERONE
     Indication: SCHIZOPHRENIA
     Dosage: 42 MG, 1X/DAY
     Route: 048
     Dates: start: 20200813, end: 20200909
  5. METOPROLOL ER [Concomitant]
     Active Substance: METOPROLOL SUCCINATE
     Dosage: 25 MG, 1X/DAY
  6. IBUPROFEN. [Concomitant]
     Active Substance: IBUPROFEN
     Dosage: 800 MG, 3X DAILY AS NEEDED
  7. ZYPREXA [Concomitant]
     Active Substance: OLANZAPINE
     Dosage: 20 MG, 1X/DAY
  8. ABILIFY [Concomitant]
     Active Substance: ARIPIPRAZOLE
     Dosage: 15 MG, 1X/DAY

REACTIONS (1)
  - Paranoia [Unknown]

NARRATIVE: CASE EVENT DATE: 20200817
